FAERS Safety Report 4355891-X (Version None)
Quarter: 2004Q2

REPORT INFORMATION
  Report Type: 
  Country: None (occurrence: None)
  Receive Date: 20040505
  Receipt Date: 20040426
  Transmission Date: 20050107
  Serious: Yes (Hospitalization)
  Sender: FDA-Public Use
  Company Number: JP-JNJFOC-20040405307

PATIENT
  Age: 35 Year
  Sex: Male

DRUGS (2)
  1. LEVOFLOXACIN [Suspect]
     Indication: SINUSITIS
     Dosage: 1 IN 1 DAY, ORAL
     Route: 048
     Dates: end: 20040415
  2. PREDNISOLONE [Suspect]
     Indication: SINUSITIS
     Dosage: 60 MG, ORAL
     Route: 048
     Dates: end: 20040401

REACTIONS (2)
  - CONFUSIONAL STATE [None]
  - DELIRIUM [None]
